FAERS Safety Report 7701480-6 (Version None)
Quarter: 2011Q3

REPORT INFORMATION
  Report Type: 
  Country: None (occurrence: None)
  Receive Date: 20110819
  Receipt Date: 20110819
  Transmission Date: 20111222
  Serious: Yes (Hospitalization)
  Sender: FDA-Public Use
  Company Number: None

PATIENT
  Sex: Female
  Weight: 88.9 kg

DRUGS (12)
  1. PACLITAXEL [Suspect]
     Dosage: 160 MG
     Dates: end: 20110812
  2. CARBOPLATIN [Suspect]
     Dosage: 519 MG
     Dates: end: 20110812
  3. MULTIPLE VITAMIN [Concomitant]
  4. ASCORBIC ACID [Concomitant]
  5. ATIVAN [Concomitant]
  6. CALCIUM CARBONATE- VITAMIN D [Concomitant]
  7. GLUCOSAMINE-CHONDROINTIN [Concomitant]
  8. PRILOSEC [Concomitant]
  9. XALATAN [Concomitant]
  10. ZOFRAN [Concomitant]
  11. COMBIGAN [Concomitant]
  12. OMEGA-3 FATTY ACIDS [Concomitant]

REACTIONS (5)
  - VOMITING [None]
  - MALLORY-WEISS SYNDROME [None]
  - HAEMATEMESIS [None]
  - OESOPHAGITIS [None]
  - NAUSEA [None]
